FAERS Safety Report 7287548-X (Version None)
Quarter: 2011Q1

REPORT INFORMATION
  Report Type: 
  Country: None (occurrence: None)
  Receive Date: 20110211
  Receipt Date: 20110201
  Transmission Date: 20110831
  Serious: Yes (Life-Threatening, Hospitalization, Other)
  Sender: FDA-Public Use
  Company Number: CA-JNJFOC-20110106692

PATIENT
  Sex: Female
  Weight: 76.2 kg

DRUGS (15)
  1. COUMADIN [Concomitant]
     Indication: ATRIAL FIBRILLATION
     Dosage: DOSE IS ACCORDING TO INR
     Route: 048
  2. UREMOL [Concomitant]
     Indication: DRY SKIN
     Dosage: 1 APP PRN
     Route: 061
  3. LANOXIN [Concomitant]
     Indication: ARRHYTHMIA
     Route: 048
  4. IMOVANE [Concomitant]
     Indication: INSOMNIA
     Route: 048
  5. NITROGLYCERIN [Concomitant]
     Indication: CHEST PAIN
     Dosage: 1 PUFF PRN
  6. REMICADE [Suspect]
     Indication: RHEUMATOID ARTHRITIS
     Route: 042
  7. TIAZAC [Concomitant]
     Indication: HYPERTENSION
     Route: 048
  8. LIPITOR [Concomitant]
     Indication: HYPERLIPIDAEMIA
     Route: 048
  9. K-DUR [Concomitant]
     Indication: PROPHYLAXIS
     Route: 048
  10. ARAVA [Concomitant]
     Indication: RHEUMATOID ARTHRITIS
     Route: 048
  11. ACETAMINOPHEN [Concomitant]
     Indication: ARTHRALGIA
     Route: 048
  12. ACCUPRIL [Concomitant]
     Indication: HYPERTENSION
     Route: 048
  13. DIDROCAL [Concomitant]
     Indication: OSTEOPOROSIS PROPHYLAXIS
     Route: 048
  14. EVISTA [Concomitant]
     Indication: HORMONE THERAPY
  15. PREDNISONE [Concomitant]
     Indication: RHEUMATOID ARTHRITIS
     Route: 048

REACTIONS (4)
  - CELLULITIS [None]
  - PNEUMONIA [None]
  - SEPTIC SHOCK [None]
  - LOSS OF CONSCIOUSNESS [None]
